FAERS Safety Report 16664662 (Version 1)
Quarter: 2019Q3

REPORT INFORMATION
  Report Type: Spontaneous
  Country: CN (occurrence: CN)
  Receive Date: 20190803
  Receipt Date: 20190803
  Transmission Date: 20191004
  Serious: Yes (Hospitalization, Disabling)
  Sender: FDA-Public Use
  Company Number: CN-ROCHE-2368993

PATIENT
  Age: 37 Year
  Sex: Male
  Weight: 60 kg

DRUGS (8)
  1. METFORMIN HYDROCHLORIDE. [Concomitant]
     Active Substance: METFORMIN HYDROCHLORIDE
  2. GLIMEPIRIDE. [Concomitant]
     Active Substance: GLIMEPIRIDE
  3. XELODA [Suspect]
     Active Substance: CAPECITABINE
     Indication: ADENOCARCINOMA OF COLON
     Dosage: PER 21DAYS AS ONE CYCLE
     Route: 048
     Dates: start: 20190603, end: 20190616
  4. OXALIPLATIN. [Suspect]
     Active Substance: OXALIPLATIN
     Indication: ADENOCARCINOMA OF COLON
     Dosage: PER 21DAYS AS ONE CYCLE
     Route: 041
     Dates: start: 20190604, end: 20190604
  5. ISOPHANE INSULIN [Concomitant]
     Active Substance: INSULIN NOS
  6. BIOSYNTHETIC HUMAN INSULIN [Concomitant]
     Active Substance: INSULIN HUMAN
  7. PROTAMINE [Concomitant]
     Active Substance: PROTAMINE
  8. MIGLITOL. [Concomitant]
     Active Substance: MIGLITOL

REACTIONS (1)
  - Diabetes mellitus [Recovering/Resolving]

NARRATIVE: CASE EVENT DATE: 20190617
